FAERS Safety Report 7094683-8 (Version None)
Quarter: 2010Q4

REPORT INFORMATION
  Report Type: 
  Country: None (occurrence: None)
  Receive Date: 20101110
  Receipt Date: 20080723
  Transmission Date: 20110411
  Serious: No
  Sender: FDA-Public Use
  Company Number: US-KINGPHARMUSA00001-K200800882

PATIENT
  Sex: Female

DRUGS (10)
  1. CYTOMEL [Suspect]
     Dosage: 150 MCG, UNK
     Route: 048
     Dates: end: 20080401
  2. ADVAIR DISKUS 100/50 [Concomitant]
     Indication: ASTHMA
  3. ALBUTEROL [Concomitant]
     Indication: ASTHMA
  4. ALLEGRA [Concomitant]
     Indication: ASTHMA
     Dosage: 180 MG, QD
     Route: 048
  5. SUDAFED  /00070002/ [Concomitant]
     Dosage: UNK, PRN
  6. CALCITROL  /00508501/ [Concomitant]
     Indication: HYPOCALCAEMIA
  7. XANAX [Concomitant]
     Dosage: .25 UNK, PRN
     Route: 048
  8. KADIAN [Concomitant]
     Dosage: UNK, BID
  9. MORPHINE SULFATE [Concomitant]
     Dosage: UNK, PRN
  10. LEVOXYL [Concomitant]
     Indication: THYROIDECTOMY
     Dosage: 300 MCG, QD
     Route: 048
     Dates: start: 20060101

REACTIONS (1)
  - FATIGUE [None]
